FAERS Safety Report 6480270-9 (Version None)
Quarter: 2009Q4

REPORT INFORMATION
  Report Type: 
  Country: None (occurrence: None)
  Receive Date: 20091202
  Receipt Date: 20091118
  Transmission Date: 20100525
  Serious: Yes (Hospitalization)
  Sender: FDA-Public Use
  Company Number: 8054622

PATIENT
  Age: 55 Year
  Sex: Male
  Weight: 61.3 kg

DRUGS (2)
  1. KEPPRA [Suspect]
     Indication: CONVULSION
     Dosage: 500 MG 2/D PO
     Route: 048
     Dates: start: 20090901
  2. DILANTIN [Concomitant]

REACTIONS (3)
  - CONVULSION [None]
  - EMOTIONAL DISORDER [None]
  - FALL [None]
